FAERS Safety Report 6691770-0 (Version None)
Quarter: 2010Q2

REPORT INFORMATION
  Report Type: 
  Country: None (occurrence: None)
  Receive Date: 20100422
  Receipt Date: 20090722
  Transmission Date: 20101027
  Serious: No
  Sender: FDA-Public Use
  Company Number: US-ASTRAZENECA-2009UW14682

PATIENT
  Sex: Male

DRUGS (10)
  1. METOPROLOL SUCCINATE [Suspect]
     Route: 048
  2. METOPROLOL SUCCINATE [Suspect]
     Route: 048
  3. METFORMIN HCL [Concomitant]
  4. NEXIUM [Concomitant]
  5. PLAVIX [Concomitant]
  6. ISOSORBIDE DINITRATE [Concomitant]
  7. DIOVAN [Concomitant]
  8. GLIPIZIDE [Concomitant]
  9. DOXAZOSIN MESYLATE [Concomitant]
  10. ASPIRIN [Concomitant]

REACTIONS (6)
  - HEADACHE [None]
  - HYPOAESTHESIA [None]
  - INSOMNIA [None]
  - MALAISE [None]
  - NASAL DRYNESS [None]
  - RHINALGIA [None]
